FAERS Safety Report 10613897 (Version 1)
Quarter: 2014Q4

REPORT INFORMATION
  Report Type: Spontaneous
  Country: US (occurrence: US)
  Receive Date: 20141128
  Receipt Date: 20141128
  Transmission Date: 20150529
  Serious: No
  Sender: FDA-Public Use
  Company Number: US-GLAXOSMITHKLINE-A1068088A

PATIENT

DRUGS (1)
  1. BUPROPION HCL MODIFIED-RELEASE TABLET [Suspect]
     Active Substance: BUPROPION HYDROCHLORIDE
     Indication: FIBROMYALGIA
     Route: 048

REACTIONS (2)
  - Pyrexia [Unknown]
  - Urticaria [Recovered/Resolved]
